FAERS Safety Report 5132601-X (Version None)
Quarter: 2006Q4

REPORT INFORMATION
  Report Type: 
  Country: None (occurrence: None)
  Receive Date: 20061017
  Receipt Date: 20061002
  Transmission Date: 20070319
  Serious: No
  Sender: FDA-Public Use
  Company Number: 218864

PATIENT
  Sex: Female

DRUGS (6)
  1. RAPTIVA [Suspect]
     Indication: PSORIASIS
     Dosage: 0.7 ML, 1/WEEK, SUBCUTANEOUS
     Route: 058
     Dates: start: 20050509
  2. CLOBETASOL (CLOBETASOL PROPIONATE) [Concomitant]
  3. PROTOPIC OINTMENT (TACROLIMUS) [Concomitant]
  4. PAXIL [Concomitant]
  5. WELLBUTRIN [Concomitant]
  6. TOPICAL STEROIDS (UNKNOWN INGREDIENTS) [Concomitant]

REACTIONS (6)
  - CERVICAL DYSPLASIA [None]
  - HUMAN PAPILLOMA VIRUS TEST POSITIVE [None]
  - LYMPHOCYTE COUNT ABNORMAL [None]
  - NEUTROPHIL COUNT INCREASED [None]
  - SMEAR CERVIX ABNORMAL [None]
  - VULVAR DYSPLASIA [None]
